FAERS Safety Report 5428686-3 (Version None)
Quarter: 2007Q3

REPORT INFORMATION
  Report Type: 
  Country: None (occurrence: None)
  Receive Date: 20070827
  Receipt Date: 20070815
  Transmission Date: 20080115
  Serious: Yes (Hospitalization, Other)
  Sender: FDA-Public Use
  Company Number: 233761K07USA

PATIENT
  Age: 38 Year
  Sex: Female
  Weight: 38.5557 kg

DRUGS (13)
  1. REBIF [Suspect]
     Indication: MULTIPLE SCLEROSIS
     Dosage: 44 MCG, 3 IN 1 WEEKS, SUBCUTANEOUS
     Route: 058
     Dates: start: 20061107
  2. ZOLOFT [Concomitant]
  3. PLENDIL [Concomitant]
  4. PRILOSEC [Concomitant]
  5. DONNATAL [Concomitant]
  6. ESGIC (AXOTAL /00727001/) [Concomitant]
  7. VICOPROFEN [Concomitant]
  8. XANAX [Concomitant]
  9. VICODIN [Concomitant]
  10. PROVIGIL [Concomitant]
  11. FOLIC ACID [Concomitant]
  12. MULTI-VITAMINS [Concomitant]
  13. LORAZEPAM [Concomitant]

REACTIONS (8)
  - ANGIOPATHY [None]
  - CHOLELITHIASIS [None]
  - DIARRHOEA [None]
  - LIVER DISORDER [None]
  - OVARIAN CYST [None]
  - PANCREATIC DISORDER [None]
  - VOMITING [None]
  - WEIGHT DECREASED [None]
